FAERS Safety Report 19572582 (Version 2)
Quarter: 2021Q3

REPORT INFORMATION
  Report Type: Spontaneous
  Country: US (occurrence: US)
  Receive Date: 20210716
  Receipt Date: 20210906
  Transmission Date: 20211014
  Serious: Yes (Hospitalization, Disabling, Other)
  Sender: FDA-Public Use
  Company Number: US-PURDUE-USA-2021-0274629

PATIENT
  Sex: Female

DRUGS (2)
  1. OXYCONTIN [Suspect]
     Active Substance: OXYCODONE HYDROCHLORIDE
     Indication: PAIN
     Dosage: 40 MG, 1?3X
     Route: 048
  2. HEROIN [Suspect]
     Active Substance: DIAMORPHINE
     Indication: PAIN
     Dosage: UNKNOWN
     Route: 065

REACTIONS (14)
  - Anxiety [Unknown]
  - Injury [Unknown]
  - Hospitalisation [Unknown]
  - Drug dependence [Unknown]
  - Mental disorder [Unknown]
  - Depression [Unknown]
  - Overdose [Unknown]
  - Drug abuse [Unknown]
  - Emotional distress [Unknown]
  - Eating disorder [Unknown]
  - Psychotic disorder [Unknown]
  - Bipolar disorder [Unknown]
  - Drug withdrawal syndrome [Unknown]
  - Alcohol withdrawal syndrome [Unknown]
